FAERS Safety Report 19313587 (Version 1)
Quarter: 2021Q2

REPORT INFORMATION
  Report Type: Spontaneous
  Country: CN (occurrence: CN)
  Receive Date: 20210527
  Receipt Date: 20210527
  Transmission Date: 20210717
  Serious: Yes (Other)
  Sender: FDA-Public Use
  Company Number: CN-ROCHE-2835230

PATIENT
  Age: 73 Year
  Sex: Female

DRUGS (8)
  1. CRIZOTINIB [Suspect]
     Active Substance: CRIZOTINIB
     Indication: LUNG NEOPLASM MALIGNANT
     Route: 065
  2. PEMETREXED. [Concomitant]
     Active Substance: PEMETREXED
     Indication: METASTASES TO LIVER
  3. CRIZOTINIB [Suspect]
     Active Substance: CRIZOTINIB
     Indication: METASTASES TO LIVER
     Route: 065
  4. ALBUMIN HUMAN;PACLITAXEL [Concomitant]
     Indication: METASTASES TO LIVER
  5. AVASTIN [Suspect]
     Active Substance: BEVACIZUMAB
     Indication: LUNG NEOPLASM MALIGNANT
     Dosage: ON 17/NOV/2020 AND 12/DEC/2020, ON DAY 1
     Route: 065
  6. AVASTIN [Suspect]
     Active Substance: BEVACIZUMAB
     Indication: METASTASES TO LIVER
  7. PEMETREXED. [Concomitant]
     Active Substance: PEMETREXED
     Indication: LUNG NEOPLASM MALIGNANT
     Dosage: ON 21/MAR/2020, 14/APR/2020, 07/MAY/2020, 31/MAY/2020, 26/JUN/2020, 19/JUL/2020, 14/AUG/2020, 06/SEP
  8. ALBUMIN HUMAN;PACLITAXEL [Concomitant]
     Indication: LUNG NEOPLASM MALIGNANT
     Dosage: ON 17/NOV/2020 AND 12/DEC/2020, ON DAY 1

REACTIONS (3)
  - Renal failure [Unknown]
  - Asthenia [Unknown]
  - Decreased appetite [Unknown]

NARRATIVE: CASE EVENT DATE: 2021
